FAERS Safety Report 7228351-6 (Version None)
Quarter: 2011Q1

REPORT INFORMATION
  Report Type: 
  Country: None (occurrence: None)
  Receive Date: 20110114
  Receipt Date: 20110110
  Transmission Date: 20110831
  Serious: Yes (Hospitalization)
  Sender: FDA-Public Use
  Company Number: IN-ELI_LILLY_AND_COMPANY-IN201012003410

PATIENT
  Sex: Female

DRUGS (2)
  1. HUMALOG MIX 75/25 [Suspect]
     Indication: DIABETES MELLITUS
     Dosage: UNK, 2/D
     Route: 058
     Dates: start: 20101114
  2. HUMALOG [Suspect]
     Indication: DIABETES MELLITUS
     Dosage: UNK, DAILY (1/D)
     Dates: start: 20101201, end: 20101201

REACTIONS (2)
  - DRUG INEFFECTIVE [None]
  - BLOOD GLUCOSE ABNORMAL [None]
